FAERS Safety Report 7018173-3 (Version None)
Quarter: 2010Q3

REPORT INFORMATION
  Report Type: 
  Country: None (occurrence: None)
  Receive Date: 20100928
  Receipt Date: 20100917
  Transmission Date: 20110219
  Serious: Yes (Other)
  Sender: FDA-Public Use
  Company Number: IT-JNJFOC-20100906549

PATIENT
  Sex: Female

DRUGS (2)
  1. CAELYX [Suspect]
     Indication: OVARIAN CANCER RECURRENT
     Dosage: VIA ONE HOUR TRANSFUSION
     Route: 042
  2. METHYLPREDNISOLONE [Suspect]
     Indication: OVARIAN CANCER RECURRENT
     Dosage: PREMEDICATION ALWAYS GIVEN 30 MINS BEFORE CAELYX ADMINISTRATION
     Route: 042

REACTIONS (1)
  - LIVER DISORDER [None]
